FAERS Safety Report 8993616 (Version 1)
Quarter: 2013Q1

REPORT INFORMATION
  Report Type: Report from Study
  Country: IL (occurrence: IL)
  Receive Date: 20130102
  Receipt Date: 20130102
  Transmission Date: 20140127
  Serious: Yes (Other)
  Sender: FDA-Public Use
  Company Number: IL-BAYER-2012-136368

PATIENT
  Age: 51 Year
  Sex: Female

DRUGS (1)
  1. LEVONORGESTREL [Suspect]
     Dosage: 20 MCG/24HR, CONT
     Route: 015
     Dates: start: 20121227, end: 20121227

REACTIONS (2)
  - Arterial haemorrhage [Recovered/Resolved]
  - Device difficult to use [None]
